FAERS Safety Report 8772418 (Version 2)
Quarter: 2012Q4

REPORT INFORMATION
  Report Type: 
  Country: US (occurrence: US)
  Receive Date: 20120905
  Receipt Date: 20121026
  Transmission Date: 20130627
  Serious: No
  Sender: FDA-Public Use
  Company Number: US-PFIZER INC-2012214392

PATIENT
  Age: 71 Year
  Sex: Male
  Weight: 72.56 kg

DRUGS (10)
  1. VFEND [Suspect]
     Indication: PULMONARY MASS
     Dosage: 200 mg, 2x/day
     Dates: start: 2012, end: 201207
  2. ALLOPURINOL [Concomitant]
     Indication: GOUT
     Dosage: 300 mg, daily
  3. INDOMETHACIN [Concomitant]
     Indication: GOUT
     Dosage: 50 mg, as needed
  4. SIMVASTATIN [Concomitant]
     Dosage: 40 mg, daily
  5. AMLODIPINE BESILATE [Concomitant]
     Dosage: 5 mg, daily
  6. ACETYLSALICYLIC ACID [Concomitant]
     Indication: CAROTID ARTERY OCCLUSION
     Dosage: 81 mg, daily
  7. PLAVIX [Concomitant]
     Indication: CAROTID ARTERY OCCLUSION
     Dosage: 75 mg, daily
  8. DEXILANT [Concomitant]
     Indication: GASTROOESOPHAGEAL REFLUX DISEASE
     Dosage: 60 mg, daily
  9. AMBIEN [Concomitant]
     Indication: SLEEP DISORDER
     Dosage: 10 mg, as needed
  10. DEPAKOTE [Concomitant]
     Indication: DEPRESSION
     Dosage: 500 mg, daily

REACTIONS (3)
  - Fatigue [Recovered/Resolved]
  - Gait disturbance [Recovered/Resolved]
  - Muscle disorder [Recovered/Resolved]
